FAERS Safety Report 8613127-5 (Version None)
Quarter: 2012Q3

REPORT INFORMATION
  Report Type: 
  Country: None (occurrence: None)
  Receive Date: 20120822
  Receipt Date: 20120730
  Transmission Date: 20120928
  Serious: Yes (Other)
  Sender: FDA-Public Use
  Company Number: GB-009507513-1208GBR007110

PATIENT

DRUGS (7)
  1. MOLIPAXIN [Concomitant]
  2. COZAAR [Suspect]
     Dosage: UNK
     Route: 048
     Dates: start: 20120712
  3. COZAAR [Suspect]
     Dosage: UNK
     Route: 048
     Dates: start: 20120601
  4. COZAAR [Suspect]
     Dosage: UNK
     Route: 048
     Dates: start: 20120619
  5. LORMETAZEPAM [Concomitant]
  6. ESTRADIOL [Concomitant]
  7. METFORMIN [Concomitant]

REACTIONS (3)
  - MIGRAINE [None]
  - RASH [None]
  - ANAPHYLACTIC SHOCK [None]
